FAERS Safety Report 10662318 (Version 2)
Quarter: 2014Q4

REPORT INFORMATION
  Report Type: Spontaneous
  Country: US (occurrence: US)
  Receive Date: 20141218
  Receipt Date: 20141219
  Transmission Date: 20150529
  Serious: No
  Sender: FDA-Public Use
  Company Number: US-009507513-1412USA008515

PATIENT
  Age: 26 Year
  Sex: Female
  Weight: 80.27 kg

DRUGS (1)
  1. NEXPLANON [Suspect]
     Active Substance: ETONOGESTREL
     Indication: CONTRACEPTION
     Dosage: UNK
     Route: 059
     Dates: start: 20140331

REACTIONS (2)
  - Menorrhagia [Unknown]
  - Menstruation irregular [Unknown]

NARRATIVE: CASE EVENT DATE: 201405
